FAERS Safety Report 14283130 (Version 5)
Quarter: 2018Q1

REPORT INFORMATION
  Report Type: Report from Study
  Country: US (occurrence: US)
  Receive Date: 20171213
  Receipt Date: 20180327
  Transmission Date: 20180508
  Serious: Yes (Death, Hospitalization)
  Sender: FDA-Public Use
  Company Number: US-ACTELION-A-US2017-163967

PATIENT
  Age: 65 Year
  Sex: Male

DRUGS (3)
  1. OPSUMIT [Suspect]
     Active Substance: MACITENTAN
     Indication: PULMONARY ARTERIAL HYPERTENSION
     Dosage: 10 MG, UNK
     Route: 048
     Dates: start: 20161123, end: 20171227
  2. ADCIRCA [Concomitant]
     Active Substance: TADALAFIL
     Dosage: 40 MG, UNK
     Dates: start: 20170224
  3. OFEV [Concomitant]
     Active Substance: NINTEDANIB
     Dosage: 150 MG, UNK
     Dates: start: 20161123

REACTIONS (9)
  - Pneumonia [Not Recovered/Not Resolved]
  - Idiopathic pulmonary fibrosis [Fatal]
  - Infection [Not Recovered/Not Resolved]
  - Lung transplant [Unknown]
  - Movement disorder [Unknown]
  - Asthenia [Unknown]
  - Transplant evaluation [Unknown]
  - Dyspnoea [Unknown]
  - Pulmonary arterial hypertension [Fatal]

NARRATIVE: CASE EVENT DATE: 2017
